FAERS Safety Report 5318897-X (Version None)
Quarter: 2007Q1

REPORT INFORMATION
  Report Type: 
  Country: None (occurrence: None)
  Receive Date: 20070201
  Receipt Date: 20061130
  Transmission Date: 20070707
  Serious: No
  Sender: FDA-Public Use
  Company Number: VNL_0314_2006

PATIENT
  Age: 75 Year
  Sex: Female
  Weight: 90.7194 kg

DRUGS (17)
  1. APOKYN [Suspect]
     Indication: PARKINSON'S DISEASE
     Dosage: 0.2 ML TID SC
     Route: 058
     Dates: start: 20060901, end: 20061001
  2. APOKYN [Suspect]
     Indication: PARKINSON'S DISEASE
     Dosage: 0.3 ML TID SC
     Route: 058
     Dates: start: 20061001
  3. BETHANECHOL [Concomitant]
  4. TRIMETHOBENZAMIDE [Concomitant]
  5. SINEMET [Concomitant]
  6. MIRAPEX [Concomitant]
  7. TASMAR [Concomitant]
  8. NEURONTIN [Concomitant]
  9. PRAVACHOL [Concomitant]
  10. GLIPIZIDE [Concomitant]
  11. ATENOLOL [Concomitant]
  12. METFORMIN HCL [Concomitant]
  13. ISOSORBIDE [Concomitant]
  14. DIOVAN/01319601/ [Concomitant]
  15. IRON [Concomitant]
  16. MACRODANTIN [Concomitant]
  17. LANTUS [Concomitant]

REACTIONS (2)
  - DRUG INEFFECTIVE [None]
  - PHARMACEUTICAL PRODUCT COMPLAINT [None]
